FAERS Safety Report 8181945-6 (Version None)
Quarter: 2012Q1

REPORT INFORMATION
  Report Type: 
  Country: None (occurrence: None)
  Receive Date: 20120302
  Receipt Date: 20120219
  Transmission Date: 20120608
  Serious: Yes (Other)
  Sender: FDA-Public Use
  Company Number: PHHY2012IT016843

PATIENT
  Age: 53 Year
  Sex: Female

DRUGS (3)
  1. HYPER-CVAD [Concomitant]
  2. DASATINIB [Suspect]
     Dosage: 50 MG, UNK
  3. IMATINIB MESYLATE [Suspect]
     Indication: ACUTE LYMPHOCYTIC LEUKAEMIA
     Dosage: 600 MG, UNK

REACTIONS (4)
  - THROMBOCYTOPENIA [None]
  - CHRONIC GRAFT VERSUS HOST DISEASE [None]
  - ACUTE GRAFT VERSUS HOST DISEASE IN LIVER [None]
  - NEUTROPENIA [None]
